FAERS Safety Report 6611800-1 (Version None)
Quarter: 2010Q1

REPORT INFORMATION
  Report Type: 
  Country: None (occurrence: None)
  Receive Date: 20100303
  Receipt Date: 20100226
  Transmission Date: 20100710
  Serious: Yes (Hospitalization)
  Sender: FDA-Public Use
  Company Number: FR-ROCHE-685002

PATIENT
  Sex: Male

DRUGS (6)
  1. VALGANCICLOVIR HCL [Interacting]
     Indication: CYTOMEGALOVIRUS INFECTION
     Route: 048
     Dates: start: 20090518, end: 20090709
  2. MYCOPHENOLATE MOFETIL [Suspect]
     Indication: TRANSPLANT
     Route: 048
     Dates: start: 20090422
  3. SULFAMETHOXAZOLE AND TRIMETHOPRIM [Interacting]
     Indication: PROPHYLAXIS
     Route: 048
     Dates: start: 20090425, end: 20090709
  4. INIPOMP [Suspect]
     Indication: GASTRIC DISORDER
     Route: 048
     Dates: start: 20090425, end: 20090709
  5. NEORAL [Concomitant]
     Indication: TRANSPLANT
     Route: 048
     Dates: start: 20090425
  6. CORTANCYL [Concomitant]
     Indication: TRANSPLANT
     Route: 048
     Dates: start: 20090422

REACTIONS (5)
  - ATRIAL THROMBOSIS [None]
  - CEREBRAL ASPERGILLOSIS [None]
  - DRUG INTERACTION [None]
  - LABELLED DRUG-DRUG INTERACTION MEDICATION ERROR [None]
  - LYMPHOPENIA [None]
